FAERS Safety Report 13909420 (Version 2)
Quarter: 2017Q3

REPORT INFORMATION
  Report Type: Spontaneous
  Country: US (occurrence: US)
  Receive Date: 20170828
  Receipt Date: 20170914
  Transmission Date: 20171127
  Serious: Yes (Hospitalization, Other)
  Sender: FDA-Public Use
  Company Number: US-AMGEN-USASP2017127816

PATIENT
  Age: 52 Year
  Sex: Female
  Weight: 65.4 kg

DRUGS (9)
  1. MTX [Suspect]
     Active Substance: METHOTREXATE SODIUM
     Indication: PRODUCT USED FOR UNKNOWN INDICATION
     Dosage: UNK
     Route: 065
  2. PREDNISONE. [Concomitant]
     Active Substance: PREDNISONE
     Dosage: UNK
  3. GINGER. [Concomitant]
     Active Substance: GINGER
     Dosage: 500 MG, UNK (TAKES ON OCCASION)
     Route: 048
  4. SULFASALAZINE. [Suspect]
     Active Substance: SULFASALAZINE
     Indication: RHEUMATOID ARTHRITIS
     Dosage: UNK
     Route: 065
  5. PLAQUENIL [Suspect]
     Active Substance: HYDROXYCHLOROQUINE SULFATE
     Indication: RHEUMATOID ARTHRITIS
     Dosage: UNK
     Route: 065
  6. MTX [Suspect]
     Active Substance: METHOTREXATE SODIUM
     Dosage: 10 G, QWK
     Route: 065
  7. XELJANZ [Concomitant]
     Active Substance: TOFACITINIB CITRATE
     Dosage: 5 MG, BID
     Route: 048
  8. ENBREL [Suspect]
     Active Substance: ETANERCEPT
     Indication: RHEUMATOID ARTHRITIS
     Dosage: UNK
     Route: 065
     Dates: start: 2015
  9. HUMIRA [Suspect]
     Active Substance: ADALIMUMAB
     Indication: RHEUMATOID ARTHRITIS
     Dosage: UNK
     Route: 065

REACTIONS (14)
  - Rheumatoid arthritis [Unknown]
  - Influenza like illness [Unknown]
  - Synovitis [Unknown]
  - Vitamin D deficiency [Unknown]
  - Gastrointestinal disorder [Unknown]
  - Hysterectomy [Unknown]
  - Limb discomfort [Unknown]
  - Cardiac ablation [Unknown]
  - Pleuropericarditis [Unknown]
  - Nausea [Unknown]
  - Headache [Unknown]
  - Depressed mood [Unknown]
  - Appendicectomy [Unknown]
  - Finger deformity [Unknown]

NARRATIVE: CASE EVENT DATE: 2015
